FAERS Safety Report 16814535 (Version 1)
Quarter: 2019Q4

REPORT INFORMATION
  Report Type: Spontaneous
  Country: US (occurrence: US)
  Receive Date: 20190916
  Receipt Date: 20190916
  Transmission Date: 20200122
  Serious: Yes (Life-Threatening, Hospitalization)
  Sender: FDA-Public Use
  Company Number: None

PATIENT
  Age: 37 Year
  Sex: Male
  Weight: 69.75 kg

DRUGS (4)
  1. BASAGLAR KWIKPEN INSULIN [Concomitant]
  2. ST. JOSEPH LOW DOSE ASPIRIN [Suspect]
     Active Substance: ASPIRIN
     Indication: TYPE 1 DIABETES MELLITUS
     Dosage: ?          QUANTITY:1 TABLET(S);?
     Route: 048
     Dates: start: 20190916, end: 20190916
  3. NOVALOG FLEXPEN INSULIN, [Concomitant]
  4. ST. JOSEPH LOW DOSE ASPIRIN [Suspect]
     Active Substance: ASPIRIN
     Indication: CARDIOVASCULAR DISORDER
     Dosage: ?          QUANTITY:1 TABLET(S);?
     Route: 048
     Dates: start: 20190916, end: 20190916

REACTIONS (2)
  - Pyrexia [None]
  - Seizure [None]

NARRATIVE: CASE EVENT DATE: 20190916
